FAERS Safety Report 9181667 (Version 1)
Quarter: 2013Q1

REPORT INFORMATION
  Report Type: Spontaneous
  Country: US (occurrence: None)
  Receive Date: 20130321
  Receipt Date: 20130321
  Transmission Date: 20140127
  Serious: Yes (Hospitalization)
  Sender: FDA-Public Use
  Company Number: None

PATIENT
  Age: 59 Year
  Sex: Male
  Weight: 105 kg

DRUGS (3)
  1. RAMIPRIL [Suspect]
     Dosage: DATE OF USE IS PRIOR TO ADMIT, 10MG DAILY PO
     Route: 048
  2. INSULIN NPH [Concomitant]
  3. ASPIRIN [Concomitant]

REACTIONS (1)
  - Angioedema [None]
